FAERS Safety Report 11699512 (Version 1)
Quarter: 2015Q4

REPORT INFORMATION
  Report Type: Report from Study
  Country: US (occurrence: US)
  Receive Date: 20151105
  Receipt Date: 20151105
  Transmission Date: 20160304
  Serious: Yes (Hospitalization)
  Sender: FDA-Public Use
  Company Number: US-ALEXION PHARMACEUTICALS INC-A201504233

PATIENT
  Sex: Female

DRUGS (1)
  1. SOLIRIS [Suspect]
     Active Substance: ECULIZUMAB
     Indication: HAEMOLYTIC URAEMIC SYNDROME
     Dosage: UNK
     Route: 042

REACTIONS (7)
  - Unevaluable event [Unknown]
  - Mobility decreased [Unknown]
  - Joint dislocation [Unknown]
  - Hand fracture [Unknown]
  - Wrist fracture [Unknown]
  - Fall [Recovered/Resolved]
  - Laboratory test abnormal [Unknown]
